FAERS Safety Report 9909604 (Version 1)
Quarter: 2014Q1

REPORT INFORMATION
  Report Type: Spontaneous
  Country: US (occurrence: None)
  Receive Date: 20140214
  Receipt Date: 20140214
  Transmission Date: 20141002
  Serious: No
  Sender: FDA-Public Use
  Company Number: None

PATIENT
  Age: 65 Year
  Sex: Female

DRUGS (12)
  1. CARBAMAZEPINE [Suspect]
     Route: 048
  2. RISPERIDONE [Concomitant]
  3. TRAZODONE [Concomitant]
  4. LASIX [Concomitant]
  5. LEVOTHYROXINE [Concomitant]
  6. LISINOPRIL [Concomitant]
  7. METOPROLOL [Concomitant]
  8. VIT D [Concomitant]
  9. GLYCOLAX [Concomitant]
  10. KCL [Concomitant]
  11. BENZTROPINE [Concomitant]
  12. HYDROXINE [Concomitant]

REACTIONS (3)
  - Rash [None]
  - Pruritus [None]
  - Rash [None]
